FAERS Safety Report 4317356-0 (Version None)
Quarter: 2004Q1

REPORT INFORMATION
  Report Type: 
  Country: None (occurrence: None)
  Receive Date: 20040312
  Receipt Date: 20040302
  Transmission Date: 20041129
  Serious: Yes (Hospitalization)
  Sender: FDA-Public Use
  Company Number: 2004CG00439

PATIENT
  Age: 66 Year
  Sex: Male

DRUGS (5)
  1. ATACAND [Suspect]
     Indication: ATRIAL FIBRILLATION
     Dosage: 1 DF QD PO
     Route: 048
     Dates: start: 20040115, end: 20040202
  2. CORDARONE [Suspect]
     Indication: ATRIAL FIBRILLATION
     Dosage: 200 MG QD PO
     Route: 048
     Dates: start: 20040115, end: 20040202
  3. INDAPAMIDE [Suspect]
     Indication: ATRIAL FIBRILLATION
     Dosage: 1 DF QD PO
     Route: 048
     Dates: start: 20040115, end: 20040202
  4. RYTHMOL [Suspect]
     Indication: ATRIAL FIBRILLATION
     Dosage: 600 MG QD PO
     Route: 048
     Dates: start: 20040115, end: 20040202
  5. PREVISCAN [Concomitant]

REACTIONS (1)
  - PSORIASIS [None]
